FAERS Safety Report 6493089-X (Version None)
Quarter: 2009Q4

REPORT INFORMATION
  Report Type: 
  Country: None (occurrence: None)
  Receive Date: 20091214
  Receipt Date: 20091104
  Transmission Date: 20100525
  Serious: Yes (Other)
  Sender: FDA-Public Use
  Company Number: FR-BAYER-200938230GPV

PATIENT
  Age: 40 Year
  Sex: Female

DRUGS (1)
  1. MIRENA [Suspect]
     Indication: DRUG USE FOR UNKNOWN INDICATION
     Route: 015

REACTIONS (2)
  - ADENOMYOSIS [None]
  - CEREBROVASCULAR ACCIDENT [None]
